FAERS Safety Report 5527829-0 (Version None)
Quarter: 2007Q4

REPORT INFORMATION
  Report Type: 
  Country: None (occurrence: None)
  Receive Date: 20071128
  Receipt Date: 20071123
  Transmission Date: 20080405
  Serious: Yes (Hospitalization)
  Sender: FDA-Public Use
  Company Number: B0496817A

PATIENT
  Age: 69 Year
  Sex: Male
  Weight: 107 kg

DRUGS (3)
  1. ONDANSETRON [Suspect]
  2. VELCADE [Suspect]
  3. DOXORUBICIN HCL [Suspect]

REACTIONS (2)
  - PAIN IN EXTREMITY [None]
  - PARAESTHESIA [None]
